FAERS Safety Report 8060863-8 (Version None)
Quarter: 2012Q1

REPORT INFORMATION
  Report Type: 
  Country: None (occurrence: None)
  Receive Date: 20120120
  Receipt Date: 20110216
  Transmission Date: 20120608
  Serious: No
  Sender: FDA-Public Use
  Company Number: US-ALLERGAN-1102302US

PATIENT
  Age: 63 Year
  Sex: Female

DRUGS (3)
  1. ZADITOR                            /00495201/ [Concomitant]
     Indication: EYE ALLERGY
  2. RESTASIS [Suspect]
     Indication: DRY EYE
     Dosage: 1 GTT, BID
     Route: 047
     Dates: start: 20090101
  3. ALREX                              /00595201/ [Concomitant]
     Indication: EYE ALLERGY

REACTIONS (1)
  - DRUG INEFFECTIVE [None]
